FAERS Safety Report 21070682 (Version 2)
Quarter: 2022Q3

REPORT INFORMATION
  Report Type: Spontaneous
  Country: JP (occurrence: JP)
  Receive Date: 20220712
  Receipt Date: 20220725
  Transmission Date: 20221026
  Serious: Yes (Death)
  Sender: FDA-Public Use
  Company Number: JP-PFIZER INC-2019205550

PATIENT
  Age: 70 Year
  Sex: Male
  Weight: 54.2 kg

DRUGS (1)
  1. LORBRENA [Suspect]
     Active Substance: LORLATINIB
     Indication: Non-small cell lung cancer
     Dosage: 100 MG, DAILY
     Route: 048
     Dates: start: 20190104, end: 20190411

REACTIONS (3)
  - Neoplasm progression [Fatal]
  - Pleural effusion [Recovered/Resolved]
  - Oedema [Recovered/Resolved]

NARRATIVE: CASE EVENT DATE: 20190118
